FAERS Safety Report 5801923-9 (Version None)
Quarter: 2008Q3

REPORT INFORMATION
  Report Type: 
  Country: None (occurrence: None)
  Receive Date: 20080702
  Receipt Date: 20080626
  Transmission Date: 20090109
  Serious: Yes (Disabling)
  Sender: FDA-Public Use
  Company Number: 2008GR_BP0369

PATIENT
  Age: 50 Year
  Sex: Female

DRUGS (3)
  1. TERBINAFINE 250 MG TABLET (TERBINAFINE) [Suspect]
     Indication: ONYCHOMYCOSIS
     Dosage: 250 MG (250 MG, 1 IN 1 D)
     Dates: start: 20080212, end: 20080523
  2. TERBINAFINE 250 MG TABLET (TERBINAFINE) [Suspect]
     Indication: ONYCHOMYCOSIS
     Dosage: 250 MG (250 MG, 1 IN 1 D)
     Dates: start: 20080201
  3. LEVOTHYROXINE SODIUM [Concomitant]

REACTIONS (1)
  - ANOSMIA [None]
